FAERS Safety Report 5858841-X (Version None)
Quarter: 2008Q3

REPORT INFORMATION
  Report Type: 
  Country: None (occurrence: None)
  Receive Date: 20080818
  Receipt Date: 20080422
  Transmission Date: 20090109
  Serious: No
  Sender: FDA-Public Use
  Company Number: WAES 0802USA05569

PATIENT
  Age: 78 Year
  Sex: Female
  Weight: 39.4629 kg

DRUGS (9)
  1. JANUVIA [Suspect]
     Indication: DIABETES MELLITUS
     Dosage: DAILY/PO : 100 MG/DAILY/PO
     Route: 048
     Dates: start: 20080213, end: 20080219
  2. JANUVIA [Suspect]
     Indication: DIABETES MELLITUS
     Dosage: DAILY/PO : 100 MG/DAILY/PO
     Route: 048
     Dates: start: 20080220, end: 20080225
  3. JANUVIA [Suspect]
     Indication: DIABETES MELLITUS
     Dosage: DAILY/PO : 100 MG/DAILY/PO
     Route: 048
     Dates: start: 20080226
  4. ACTOS [Suspect]
     Indication: DIABETES MELLITUS
     Dosage: 15 MG/DAILY/PO : 30 MG/DAILY/PO
     Route: 048
     Dates: start: 20080103, end: 20080212
  5. ACTOS [Suspect]
     Indication: DIABETES MELLITUS
     Dosage: 15 MG/DAILY/PO : 30 MG/DAILY/PO
     Route: 048
     Dates: start: 20080213, end: 20080301
  6. AMARYL [Concomitant]
  7. GLUCOPHAGE [Concomitant]
  8. HYDROCHLOROTHIAZIDE [Concomitant]
  9. METOPROLOL TARTRATE [Concomitant]

REACTIONS (5)
  - DIZZINESS [None]
  - HEADACHE [None]
  - OEDEMA PERIPHERAL [None]
  - RHINORRHOEA [None]
  - WRONG TECHNIQUE IN DRUG USAGE PROCESS [None]
